FAERS Safety Report 25343046 (Version 1)
Quarter: 2025Q2

REPORT INFORMATION
  Report Type: Spontaneous
  Country: US (occurrence: None)
  Receive Date: 20250519
  Receipt Date: 20250519
  Transmission Date: 20250717
  Serious: Yes (Hospitalization, Other)
  Sender: FDA-CTU
  Company Number: None

PATIENT
  Age: 48 Year
  Sex: Male
  Weight: 122.4 kg

DRUGS (4)
  1. DARZALEX FASPRO [Suspect]
     Active Substance: DARATUMUMAB\HYALURONIDASE-FIHJ
     Indication: Plasma cell myeloma
     Route: 058
     Dates: start: 20241213
  2. VELCADE [Suspect]
     Active Substance: BORTEZOMIB
     Dates: start: 20241213
  3. DEXAMETHASONE [Concomitant]
     Active Substance: DEXAMETHASONE
     Dates: start: 20241209
  4. REVLIMID [Concomitant]
     Active Substance: LENALIDOMIDE
     Dates: start: 20241209

REACTIONS (4)
  - Heart rate irregular [None]
  - Atrial fibrillation [None]
  - Supraventricular tachycardia [None]
  - Ventricular tachycardia [None]

NARRATIVE: CASE EVENT DATE: 20241213
